FAERS Safety Report 20444092 (Version 1)
Quarter: 2022Q1

REPORT INFORMATION
  Report Type: Spontaneous
  Country: US (occurrence: None)
  Receive Date: 20220207
  Receipt Date: 20220207
  Transmission Date: 20220424
  Serious: No
  Sender: FDA-Public Use
  Company Number: None

PATIENT
  Age: 43 Year
  Sex: Female
  Weight: 53.55 kg

DRUGS (1)
  1. FLUDROCORTISONE [Suspect]
     Active Substance: FLUDROCORTISONE
     Indication: Addison^s disease
     Dosage: FREQUENCY : DAILY;?
     Route: 048

REACTIONS (25)
  - Abdominal discomfort [None]
  - Nausea [None]
  - Abdominal distension [None]
  - Headache [None]
  - Dizziness [None]
  - Insomnia [None]
  - Dry skin [None]
  - Myalgia [None]
  - Muscular weakness [None]
  - Abdominal pain upper [None]
  - Fatigue [None]
  - Clumsiness [None]
  - Bone pain [None]
  - Arthralgia [None]
  - Skin irritation [None]
  - Peripheral swelling [None]
  - Peripheral swelling [None]
  - Peripheral swelling [None]
  - Thirst [None]
  - Hyperhidrosis [None]
  - Amenorrhoea [None]
  - Menstruation delayed [None]
  - Menstruation irregular [None]
  - Body fat disorder [None]
  - Mood altered [None]
